FAERS Safety Report 8369685-1 (Version None)
Quarter: 2012Q2

REPORT INFORMATION
  Report Type: 
  Country: None (occurrence: None)
  Receive Date: 20120518
  Receipt Date: 20120507
  Transmission Date: 20120825
  Serious: Yes (Death, Hospitalization)
  Sender: FDA-Public Use
  Company Number: GB-TEVA-2011003890

PATIENT
  Sex: Female

DRUGS (3)
  1. THALIDOMIDE [Suspect]
     Route: 048
     Dates: start: 20110610
  2. DEXAMETHASONE [Suspect]
     Route: 048
     Dates: start: 20110610
  3. TREANDA [Suspect]
     Route: 042
     Dates: start: 20110610

REACTIONS (2)
  - BRONCHOPNEUMONIA [None]
  - ARTHRITIS BACTERIAL [None]
